FAERS Safety Report 21175204 (Version 2)
Quarter: 2022Q3

REPORT INFORMATION
  Report Type: Other
  Country: CN (occurrence: None)
  Receive Date: 20220805
  Receipt Date: 20220811
  Transmission Date: 20221026
  Serious: Yes (Other)
  Sender: FDA-Public Use
  Company Number: CN-ROCHE-3153133

PATIENT
  Age: 57 Year
  Sex: Male

DRUGS (4)
  1. ALECTINIB [Suspect]
     Active Substance: ALECTINIB
     Indication: Non-small cell lung cancer
     Route: 048
     Dates: start: 20220328
  2. ALECTINIB [Concomitant]
     Active Substance: ALECTINIB
     Dates: start: 20220328
  3. PROTECT LIVER SLICES (UNK INGREDIENTS) [Concomitant]
     Dosage: 4 TABLET
     Route: 048
     Dates: start: 20220425
  4. ATORVASTATIN CALCIUM [Concomitant]
     Active Substance: ATORVASTATIN CALCIUM
     Dosage: 1 TABLET
     Route: 001
     Dates: start: 20220425

REACTIONS (2)
  - Hepatic failure [Not Recovered/Not Resolved]
  - Hypercholesterolaemia [Not Recovered/Not Resolved]

NARRATIVE: CASE EVENT DATE: 20220425
